FAERS Safety Report 8496124-2 (Version None)
Quarter: 2012Q3

REPORT INFORMATION
  Report Type: 
  Country: None (occurrence: None)
  Receive Date: 20120709
  Receipt Date: 20120704
  Transmission Date: 20120928
  Serious: Yes (Hospitalization)
  Sender: FDA-Public Use
  Company Number: CN-B.I. PHARMACEUTICALS,INC./RIDGEFIELD-2012-CS-00807CS

PATIENT
  Age: 73 Year
  Sex: Male

DRUGS (2)
  1. BACLOFEN [Concomitant]
     Indication: PARKINSON'S DISEASE
     Dates: start: 20110801
  2. PRAMIPEXOLE DIHYDROCHLORIDE [Suspect]
     Indication: PARKINSON'S DISEASE
     Dates: start: 20100101, end: 20120601

REACTIONS (2)
  - HYPONATRAEMIA [None]
  - URINARY TRACT INFECTION [None]
